FAERS Safety Report 24627453 (Version 1)
Quarter: 2024Q4

REPORT INFORMATION
  Report Type: Report from Study
  Country: CA (occurrence: CA)
  Receive Date: 20241116
  Receipt Date: 20241116
  Transmission Date: 20250114
  Serious: Yes (Other)
  Sender: CELLTRION
  Company Number: CA-CELLTRION INC.-2023CA011721

PATIENT

DRUGS (5)
  1. ADALIMUMAB-AATY [Suspect]
     Active Substance: ADALIMUMAB-AATY
     Indication: Crohn^s disease
     Dosage: 40 MG, WEEKLY, EVERY SUNDAY
     Route: 058
     Dates: start: 20230605
  2. ADALIMUMAB-AATY [Suspect]
     Active Substance: ADALIMUMAB-AATY
     Dosage: 40 MG WEEKLY, EVERY SUNDAY
     Route: 058
     Dates: start: 20240804
  3. BUDESONIDE [Concomitant]
     Active Substance: BUDESONIDE
     Dosage: 9 MG, DAILY
  4. VITAMIN C [Concomitant]
     Active Substance: ASCORBIC ACID
  5. FERMAX [Concomitant]

REACTIONS (3)
  - Colitis [Unknown]
  - Injection site urticaria [Recovered/Resolved]
  - Fatigue [Recovering/Resolving]

NARRATIVE: CASE EVENT DATE: 20230605
